FAERS Safety Report 6994079-0 (Version None)
Quarter: 2010Q3

REPORT INFORMATION
  Report Type: 
  Country: None (occurrence: None)
  Receive Date: 20100917
  Receipt Date: 20070515
  Transmission Date: 20110219
  Serious: Yes (Other)
  Sender: FDA-Public Use
  Company Number: US-ASTRAZENECA-2006UW12189

PATIENT
  Age: 13565 Day
  Sex: Female
  Weight: 98.4 kg

DRUGS (12)
  1. SEROQUEL [Suspect]
     Dosage: 20-100 MG
     Route: 048
     Dates: start: 19980925
  2. GEODON [Concomitant]
     Dosage: 20-40 MG QHS
     Route: 048
     Dates: start: 20020531
  3. RISPERDAL [Concomitant]
     Dosage: 0.5-3 MG
     Route: 048
     Dates: start: 19970912
  4. ATIVAN [Concomitant]
     Dosage: 2-8 MG
     Dates: start: 19980925
  5. BENADRYL [Concomitant]
     Dates: start: 19981002
  6. REMERON [Concomitant]
     Dates: start: 20020531
  7. XANAX [Concomitant]
     Indication: RESTLESSNESS
     Dosage: 0.5-3 MG
     Route: 048
     Dates: start: 20020531
  8. XANAX [Concomitant]
     Indication: SLEEP DISORDER
     Dosage: 0.5-3 MG
     Route: 048
     Dates: start: 20020531
  9. LEXAPRO [Concomitant]
     Dosage: 20 MG HALF BID
     Route: 048
     Dates: start: 20040603
  10. SINEQUAN [Concomitant]
     Dates: start: 20020503
  11. HYDROCHLOROTHIAZIDE [Concomitant]
     Dates: start: 20051128
  12. DESYRAL [Concomitant]

REACTIONS (3)
  - DIABETES MELLITUS [None]
  - PANCREATITIS [None]
  - TYPE 2 DIABETES MELLITUS [None]
